FAERS Safety Report 8001803-7 (Version None)
Quarter: 2011Q4

REPORT INFORMATION
  Report Type: 
  Country: None (occurrence: None)
  Receive Date: 20111222
  Receipt Date: 20111220
  Transmission Date: 20120403
  Serious: Yes (Death)
  Sender: FDA-Public Use
  Company Number: CA-EISAI INC-E2020-10053-SPO-CA

PATIENT
  Sex: Male
  Weight: 67.6 kg

DRUGS (13)
  1. TYLENOL W/ CODEINE NO. 2 [Suspect]
     Indication: PAIN
     Route: 048
     Dates: start: 20111101
  2. SYNTHROID [Concomitant]
     Indication: THYROID DISORDER
  3. FUROSEMIDE [Concomitant]
     Dates: start: 20090501
  4. CALCIUM [Concomitant]
     Indication: OSTEOPOROSIS
     Dates: start: 20100201
  5. SPIRONOLACTONE [Concomitant]
     Dates: start: 20100401
  6. WARFARIN SODIUM [Concomitant]
     Indication: ATRIAL FIBRILLATION
     Dates: start: 20090501
  7. ARICEPT [Suspect]
     Route: 048
     Dates: end: 20111109
  8. QUETIAPINE [Concomitant]
     Indication: AGGRESSION
     Dates: start: 20091001
  9. QUETIAPINE [Concomitant]
     Indication: DEMENTIA
  10. TERAZOSIN HCL [Concomitant]
     Dates: start: 20110801
  11. METOPROLOL TARTRATE [Concomitant]
     Indication: ATRIAL FIBRILLATION
     Dates: start: 20090501
  12. VITAMIN D [Concomitant]
     Indication: OSTEOPOROSIS
     Dates: start: 20100201
  13. LACTULOSE [Concomitant]
     Indication: CONSTIPATION
     Dates: start: 20111101

REACTIONS (5)
  - COUGH [None]
  - ASTHENIA [None]
  - DRUG INEFFECTIVE [None]
  - PNEUMONIA [None]
  - PARKINSON'S DISEASE [None]
